FAERS Safety Report 15490394 (Version 1)
Quarter: 2018Q4

REPORT INFORMATION
  Report Type: Spontaneous
  Country: US (occurrence: US)
  Receive Date: 20181011
  Receipt Date: 20181011
  Transmission Date: 20190205
  Serious: Yes (Other)
  Sender: FDA-Public Use
  Company Number: PHHY2018US118113

PATIENT

DRUGS (2)
  1. VANCOMYCIN [Suspect]
     Active Substance: VANCOMYCIN
     Indication: PRODUCT USED FOR UNKNOWN INDICATION
     Dosage: UNK
     Route: 065
  2. BIVALIRUDIN. [Concomitant]
     Active Substance: BIVALIRUDIN
     Indication: VENOUS OCCLUSION
     Dosage: UNK
     Route: 065

REACTIONS (1)
  - Renal impairment [Unknown]
